FAERS Safety Report 5424554-1 (Version None)
Quarter: 2007Q3

REPORT INFORMATION
  Report Type: 
  Country: None (occurrence: None)
  Receive Date: 20070822
  Receipt Date: 20070809
  Transmission Date: 20080115
  Serious: Yes (Hospitalization)
  Sender: FDA-Public Use
  Company Number: 6034424

PATIENT
  Age: 30 Year
  Sex: Male

DRUGS (1)
  1. METFORMIN HCL [Suspect]
     Indication: DIABETES MELLITUS
     Dosage: 1500 MG (500 MG, 3 IN 1 D)

REACTIONS (6)
  - ABDOMINAL DISCOMFORT [None]
  - BLOOD LACTATE DEHYDROGENASE INCREASED [None]
  - BLOOD PRESSURE INCREASED [None]
  - DIARRHOEA [None]
  - PNEUMOPERITONEUM [None]
  - VOMITING [None]
